FAERS Safety Report 7866792-4 (Version None)
Quarter: 2011Q4

REPORT INFORMATION
  Report Type: 
  Country: None (occurrence: None)
  Receive Date: 20111028
  Receipt Date: 20110815
  Transmission Date: 20120403
  Serious: No
  Sender: FDA-Public Use
  Company Number: US-GLAXOSMITHKLINE-A0941769A

PATIENT
  Age: 55 Year
  Sex: Female

DRUGS (6)
  1. VICODIN [Suspect]
     Indication: BACK DISORDER
     Route: 065
  2. ALLEGRA [Suspect]
     Indication: SEASONAL ALLERGY
     Dosage: 180MG IN THE MORNING
     Route: 065
     Dates: start: 20110801, end: 20110801
  3. ADVAIR DISKUS 100/50 [Suspect]
     Indication: ASTHMA
     Route: 055
  4. PREDNISONE [Suspect]
     Indication: ASTHMA
  5. SINGULAIR [Suspect]
     Indication: ASTHMA
     Route: 065
  6. SPIRIVA [Suspect]
     Indication: ASTHMA
     Route: 065

REACTIONS (1)
  - NAUSEA [None]
